FAERS Safety Report 9682222 (Version 2)
Quarter: 2013Q4

REPORT INFORMATION
  Report Type: Spontaneous
  Country: US (occurrence: US)
  Receive Date: 20131112
  Receipt Date: 20131231
  Transmission Date: 20140711
  Serious: No
  Sender: FDA-Public Use
  Company Number: US-B.I. PHARMACEUTICALS,INC./RIDGEFIELD-2013-BI-35171BP

PATIENT
  Age: 63 Year
  Sex: Male
  Weight: 89.35 kg

DRUGS (4)
  1. SPIRIVA [Suspect]
     Indication: CHRONIC OBSTRUCTIVE PULMONARY DISEASE
     Dosage: 18 MCG
     Route: 055
     Dates: start: 20111216
  2. SPIRIVA [Suspect]
     Indication: DYSPNOEA
  3. ALBUTEROL [Suspect]
     Indication: CHRONIC OBSTRUCTIVE PULMONARY DISEASE
     Dates: start: 20111216
  4. ALBUTEROL [Suspect]
     Indication: DYSPNOEA

REACTIONS (4)
  - Dry mouth [Not Recovered/Not Resolved]
  - Tooth fracture [Recovered/Resolved]
  - Tooth impacted [Not Recovered/Not Resolved]
  - Urinary retention [Recovered/Resolved with Sequelae]
